FAERS Safety Report 6222041-4 (Version None)
Quarter: 2009Q2

REPORT INFORMATION
  Report Type: 
  Country: None (occurrence: None)
  Receive Date: 20090609
  Receipt Date: 20090601
  Transmission Date: 20091009
  Serious: Yes (Other)
  Sender: FDA-Public Use
  Company Number: 2009SP011784

PATIENT
  Sex: Female

DRUGS (4)
  1. INTEGRILIN [Suspect]
     Indication: CAROTID ARTERY STENT INSERTION
     Dosage: 11.0 MG;
     Dates: start: 20080601
  2. INTEGRILIN [Suspect]
     Indication: OFF LABEL USE
     Dosage: 11.0 MG;
     Dates: start: 20080601
  3. PLAVIX [Suspect]
     Indication: CAROTID ARTERY STENT INSERTION
     Dates: start: 20080601
  4. HEPARIN [Suspect]
     Indication: CAROTID ARTERY STENT INSERTION
     Dates: start: 20080601

REACTIONS (4)
  - EXTRAVASATION [None]
  - FEELING ABNORMAL [None]
  - INFLUENZA LIKE ILLNESS [None]
  - VISUAL IMPAIRMENT [None]
